FAERS Safety Report 14714131 (Version 1)
Quarter: 2018Q2

REPORT INFORMATION
  Report Type: Spontaneous
  Country: US (occurrence: US)
  Receive Date: 20180404
  Receipt Date: 20180404
  Transmission Date: 20180711
  Serious: Yes (Other)
  Sender: FDA-Public Use
  Company Number: US-AUROBINDO-AUR-APL-2018-018087

PATIENT
  Age: 71 Year
  Sex: Male

DRUGS (11)
  1. DIAZEPAM. [Interacting]
     Active Substance: DIAZEPAM
     Indication: CATATONIA
     Dosage: UNK
     Route: 042
  2. VANCOMYCIN [Concomitant]
     Active Substance: VANCOMYCIN
     Indication: CLOSTRIDIUM DIFFICILE INFECTION
     Dosage: ()
     Route: 048
  3. DIVALPROEX [Concomitant]
     Active Substance: DIVALPROEX SODIUM
     Indication: PRODUCT USED FOR UNKNOWN INDICATION
  4. DIVALPROEX [Suspect]
     Active Substance: DIVALPROEX SODIUM
     Indication: MANIA
     Dosage: 1000 MILLIGRAM
     Route: 048
  5. DIVALPROEX [Interacting]
     Active Substance: DIVALPROEX SODIUM
     Indication: CATATONIA
     Dosage: 1500 MILLIGRAM
     Route: 048
  6. ATENOLOL. [Concomitant]
     Active Substance: ATENOLOL
     Indication: PRODUCT USED FOR UNKNOWN INDICATION
  7. CEFTRIAXONE. [Concomitant]
     Active Substance: CEFTRIAXONE
     Indication: PNEUMONIA KLEBSIELLA
     Dosage: ()
     Route: 042
  8. SIMVASTATIN. [Concomitant]
     Active Substance: SIMVASTATIN
     Indication: PRODUCT USED FOR UNKNOWN INDICATION
     Dosage: AT BEDTIME
  9. TAMSULOSIN [Concomitant]
     Active Substance: TAMSULOSIN
     Indication: PRODUCT USED FOR UNKNOWN INDICATION
     Dosage: AT BEDTIME
  10. ACETYLSALICYLIC ACID [Concomitant]
     Active Substance: ASPIRIN
     Indication: PRODUCT USED FOR UNKNOWN INDICATION
  11. AMLODIPINE [Concomitant]
     Active Substance: AMLODIPINE BESYLATE
     Indication: PRODUCT USED FOR UNKNOWN INDICATION

REACTIONS (3)
  - Drug level increased [Unknown]
  - Drug interaction [Unknown]
  - Delirium [Unknown]
